FAERS Safety Report 6667984-2 (Version None)
Quarter: 2010Q2

REPORT INFORMATION
  Report Type: 
  Country: None (occurrence: None)
  Receive Date: 20100405
  Receipt Date: 20100325
  Transmission Date: 20101027
  Serious: Yes (Hospitalization)
  Sender: FDA-Public Use
  Company Number: PL-GENENTECH-299887

PATIENT
  Sex: Female
  Weight: 49 kg

DRUGS (13)
  1. MABTHERA [Suspect]
     Indication: RHEUMATOID ARTHRITIS
     Dosage: 1000 MG, DAYS 1+15
     Route: 042
     Dates: start: 20030403, end: 20050414
  2. PREDNISONE TAB [Concomitant]
     Indication: RHEUMATOID ARTHRITIS
     Dosage: 30 MG, UNK
     Route: 048
     Dates: start: 20030404, end: 20050313
  3. PREDNISONE TAB [Concomitant]
     Dosage: UNK
     Route: 048
     Dates: start: 20050315
  4. PREDNISONE TAB [Concomitant]
     Dosage: UNK
     Route: 048
     Dates: start: 20091110
  5. METHYLPREDNISOLONE [Concomitant]
     Indication: RHEUMATOID ARTHRITIS
     Dosage: 100 MG, DAYS 1+15
     Route: 042
     Dates: start: 20030403, end: 20050414
  6. CILAZAPRIL [Concomitant]
     Indication: DRUG USE FOR UNKNOWN INDICATION
     Dosage: UNK
     Dates: start: 20040326
  7. ALENDRONIC ACID [Concomitant]
     Indication: DRUG USE FOR UNKNOWN INDICATION
     Dosage: 70 MG, 1/WEEK
     Dates: start: 20050803
  8. VITAMIN D3 [Concomitant]
     Indication: DRUG USE FOR UNKNOWN INDICATION
     Dosage: UNK
     Dates: start: 19950101
  9. AMIODARONE HCL [Concomitant]
     Indication: DRUG USE FOR UNKNOWN INDICATION
     Dosage: UNK
     Dates: start: 20050713
  10. DICLOFENAC [Concomitant]
     Indication: DRUG USE FOR UNKNOWN INDICATION
     Dosage: UNK
     Dates: start: 20050804
  11. DETRALEX [Concomitant]
     Indication: DRUG USE FOR UNKNOWN INDICATION
     Dosage: UNK
     Dates: start: 20050304
  12. CALCIUM [Concomitant]
     Indication: DRUG USE FOR UNKNOWN INDICATION
     Dosage: UNK
     Dates: start: 19950101
  13. SULFASALAZINE [Concomitant]
     Indication: DRUG USE FOR UNKNOWN INDICATION
     Dosage: UNK
     Dates: start: 20091109

REACTIONS (1)
  - BLADDER CANCER [None]
